FAERS Safety Report 16715221 (Version 4)
Quarter: 2020Q1

REPORT INFORMATION
  Report Type: Spontaneous
  Country: US (occurrence: US)
  Receive Date: 20190819
  Receipt Date: 20200303
  Transmission Date: 20200409
  Serious: No
  Sender: FDA-Public Use
  Company Number: US-PFIZER INC-2019349202

PATIENT
  Age: 64 Year
  Sex: Male
  Weight: 105.69 kg

DRUGS (1)
  1. DILANTIN [Suspect]
     Active Substance: PHENYTOIN
     Indication: SEIZURE
     Dosage: 300 MG, 2X/DAY (300MG IN THE MORNING AND 300MG IN THE AFTERNOON)
     Route: 048

REACTIONS (2)
  - Increased appetite [Unknown]
  - Visual impairment [Unknown]
